FAERS Safety Report 7137702-2 (Version None)
Quarter: 2010Q4

REPORT INFORMATION
  Report Type: 
  Country: None (occurrence: None)
  Receive Date: 20101206
  Receipt Date: 20101130
  Transmission Date: 20110411
  Serious: Yes (Hospitalization, Other)
  Sender: FDA-Public Use
  Company Number: GB-GENZYME-CLOF-1001240

PATIENT
  Sex: Female

DRUGS (44)
  1. EVOLTRA [Suspect]
     Indication: ACUTE MYELOID LEUKAEMIA
     Dosage: 33 MG, QDX5
     Route: 042
     Dates: start: 20100828, end: 20100901
  2. FUROSEMIDE [Concomitant]
     Indication: DIURETIC THERAPY
     Dosage: 20 MG, QD
     Route: 048
     Dates: start: 20100920, end: 20100923
  3. FUROSEMIDE [Concomitant]
     Dosage: 40 MG, QD
     Route: 042
     Dates: start: 20100920, end: 20100920
  4. LEVOMEPROMAZINE [Concomitant]
     Indication: ANTIEMETIC SUPPORTIVE CARE
     Dosage: 5.20 MG, QID
     Route: 048
     Dates: start: 20100905, end: 20100908
  5. LEVOMEPROMAZINE [Concomitant]
     Dosage: 5.20 MG, QID
     Route: 042
     Dates: start: 20100905, end: 20100908
  6. SANDO K [Concomitant]
     Indication: BLOOD POTASSIUM DECREASED
     Dosage: UNK
     Route: 048
     Dates: start: 20100830, end: 20100901
  7. VITAMIN K TAB [Concomitant]
     Indication: COAGULOPATHY
     Dosage: 10 MG, QD
     Route: 042
     Dates: start: 20101028, end: 20101028
  8. VITAMIN K TAB [Concomitant]
     Dosage: 2 MG, QD
     Route: 048
     Dates: start: 20100908, end: 20100908
  9. SANDO K [Concomitant]
     Dosage: 30 UNK, UNK
     Route: 048
     Dates: start: 20101028, end: 20101028
  10. LOPERAMIDE [Concomitant]
     Indication: ANTIDIARRHOEAL SUPPORTIVE CARE
     Dosage: 16 MG, PRN
     Route: 048
     Dates: start: 20100905, end: 20100915
  11. CYCLIZINE [Concomitant]
     Indication: ANTIEMETIC SUPPORTIVE CARE
     Dosage: 50 MG, TID
     Route: 048
     Dates: start: 20100905, end: 20100916
  12. CYCLIZINE [Concomitant]
     Dosage: 50 MG, TID
     Route: 042
     Dates: start: 20100905, end: 20100916
  13. ALLOPURINOL [Concomitant]
     Indication: PROPHYLAXIS
     Dosage: 300 MG, QD
     Route: 048
     Dates: start: 20100829, end: 20100903
  14. DALTEPARIN SODIUM [Concomitant]
     Indication: THROMBOSIS PROPHYLAXIS
     Dosage: 5000 U, QD
     Route: 058
     Dates: start: 20100901, end: 20100906
  15. AMILORIDE HYDROCHLORIDE [Concomitant]
     Indication: DIURETIC THERAPY
     Dosage: 5 MG, QD
     Route: 048
     Dates: start: 20100906, end: 20100907
  16. AMILORIDE HYDROCHLORIDE [Concomitant]
     Dosage: 10 MG, QD
     Route: 048
     Dates: start: 20100909, end: 20100919
  17. METOCLOPRAMIDE [Concomitant]
     Indication: MALAISE
     Dosage: 10 MG, TID
     Route: 048
     Dates: start: 20101026
  18. PARACETAMOL [Concomitant]
     Indication: ANALGESIC THERAPY
     Dosage: 1 G, PRN
     Route: 048
     Dates: start: 20100827
  19. ZOPICLONE [Concomitant]
     Indication: SLEEP DISORDER THERAPY
     Dosage: 3.75 MG, UNK
     Route: 048
     Dates: start: 20100922, end: 20100923
  20. ZOPICLONE [Concomitant]
     Dosage: 7.5 MG, QD
     Route: 048
     Dates: start: 20100830, end: 20100930
  21. TAZOCIN [Concomitant]
     Indication: ANTIBIOTIC THERAPY
     Dosage: 4.5 G, TID
     Route: 042
     Dates: start: 20100826, end: 20100906
  22. TAZOCIN [Concomitant]
     Dosage: 4.5 G, TID
     Route: 042
     Dates: start: 20101026, end: 20101028
  23. TAZOCIN [Concomitant]
     Dosage: 4.5 G, BID
     Route: 042
     Dates: start: 20101026, end: 20101101
  24. VANCOMYCIN [Concomitant]
     Indication: ANTIBIOTIC THERAPY
     Dosage: 750 MG, QD
     Route: 042
     Dates: start: 20100917, end: 20100921
  25. GENTAMICIN [Concomitant]
     Indication: SEPSIS
     Dosage: 120 MG, QD
     Route: 042
     Dates: start: 20100826, end: 20100829
  26. GENTAMICIN [Concomitant]
     Indication: ANTIBIOTIC THERAPY
     Dosage: 800 MG, QD
     Route: 042
     Dates: start: 20100904, end: 20100905
  27. GENTAMICIN [Concomitant]
     Dosage: 390 MG, QD
     Route: 042
     Dates: start: 20101026, end: 20101026
  28. MEROPENEM [Concomitant]
     Indication: ANTIBIOTIC THERAPY
     Dosage: 1 G, TID
     Route: 042
     Dates: start: 20100906, end: 20100907
  29. MEROPENEM [Concomitant]
     Indication: ESCHERICHIA SEPSIS
     Dosage: 500 MG, QID
     Route: 042
     Dates: start: 20100915, end: 20100922
  30. AMOXICILLIN [Concomitant]
     Indication: ESCHERICHIA SEPSIS
     Dosage: 1 G, TID
     Route: 042
     Dates: start: 20100907, end: 20100916
  31. AMOXICILLIN [Concomitant]
     Dosage: 250 MG, TID
     Route: 048
     Dates: start: 20101101, end: 20101105
  32. VORICONAZOLE [Concomitant]
     Indication: FUNGAL INFECTION
     Dosage: 200 MG, BID
     Route: 048
     Dates: start: 20100913, end: 20100924
  33. WARFARIN SODIUM [Concomitant]
     Indication: ATRIAL FIBRILLATION
     Dosage: UNK
     Route: 048
     Dates: start: 20080101, end: 20100907
  34. CALCIUM GLUCONATE [Concomitant]
     Indication: MINERAL SUPPLEMENTATION
     Dosage: 10 ML, QD
     Route: 042
     Dates: start: 20100919, end: 20100919
  35. SALBUTAMOL [Concomitant]
     Indication: DYSPNOEA
     Dosage: 5 MG, UNK
     Route: 055
     Dates: start: 20100920, end: 20100923
  36. ONDANSETRON [Concomitant]
     Indication: ANTIEMETIC SUPPORTIVE CARE
     Dosage: 8 MG, PRN
     Route: 048
     Dates: start: 20100901, end: 20100913
  37. FERRIPROX [Concomitant]
     Indication: IRON OVERLOAD
     Dosage: 1.5 G, TID
     Route: 048
     Dates: start: 20091101, end: 20101028
  38. DEFERASIROX [Concomitant]
     Indication: IRON OVERLOAD
     Dosage: 2 G, QD
     Route: 048
     Dates: start: 20071001, end: 20101028
  39. LEVOTHYROXINE SODIUM [Concomitant]
     Indication: HYPOTHYROIDISM
     Dosage: 50 MCG, QD
     Route: 048
     Dates: start: 20070101
  40. VERAPAMIL [Concomitant]
     Indication: ATRIAL FIBRILLATION
     Dosage: 120 MG, QD
     Route: 048
     Dates: start: 20070101
  41. OMEPRAZOLE [Concomitant]
     Indication: PROPHYLAXIS
     Dosage: 20 MG, QD
     Route: 048
     Dates: start: 20070801
  42. ACICLOVIR [Concomitant]
     Indication: PROPHYLAXIS
     Dosage: 200 MG, TID
     Route: 048
     Dates: start: 20100801, end: 20101028
  43. TRANEXAMIC ACID [Concomitant]
     Indication: PLATELET COUNT DECREASED
     Dosage: 1 G, TID
     Route: 048
     Dates: start: 20100901
  44. FLUCONAZOLE [Concomitant]
     Indication: PROPHYLAXIS
     Dosage: 50 MG, QD
     Route: 048
     Dates: start: 20100801

REACTIONS (5)
  - DIARRHOEA [None]
  - NEUTROPENIC SEPSIS [None]
  - RENAL FAILURE ACUTE [None]
  - THROMBOCYTOPENIA [None]
  - UROSEPSIS [None]
